FAERS Safety Report 8912975 (Version 1)
Quarter: 2012Q4

REPORT INFORMATION
  Report Type: 
  Country: US (occurrence: US)
  Receive Date: 20121116
  Receipt Date: 20121116
  Transmission Date: 20130627
  Serious: Yes (Hospitalization, Other)
  Sender: FDA-Public Use
  Company Number: US-JNJFOC-20121106321

PATIENT
  Age: 54 Year
  Sex: Female

DRUGS (3)
  1. XARELTO [Suspect]
     Indication: THROMBOSIS PROPHYLAXIS
     Route: 048
     Dates: start: 20121106, end: 201211
  2. XARELTO [Suspect]
     Indication: KNEE ARTHROPLASTY
     Route: 048
     Dates: start: 20121106, end: 201211
  3. PAIN MEDICATION [Concomitant]
     Indication: PAIN

REACTIONS (3)
  - Liver disorder [Unknown]
  - Haematoma [Unknown]
  - Renal disorder [Not Recovered/Not Resolved]
